FAERS Safety Report 8025256-8 (Version None)
Quarter: 2012Q1

REPORT INFORMATION
  Report Type: 
  Country: None (occurrence: None)
  Receive Date: 20120105
  Receipt Date: 20120103
  Transmission Date: 20120608
  Serious: Yes (Other)
  Sender: FDA-Public Use
  Company Number: US-PFIZER INC-2011265589

PATIENT
  Sex: Female

DRUGS (8)
  1. CHANTIX [Suspect]
     Indication: SMOKING CESSATION THERAPY
     Dosage: UNK
     Dates: start: 20090101, end: 20090101
  2. ATENOLOL [Concomitant]
     Indication: HEADACHE
     Dosage: UNK
     Dates: start: 19920101
  3. DIVALPROEX SODIUM [Concomitant]
     Indication: MANIA
  4. SUMATRIPTAN [Concomitant]
     Indication: MIGRAINE
     Dosage: UNK
     Dates: start: 19920101
  5. DIVALPROEX SODIUM [Concomitant]
     Indication: EPILEPSY
     Dosage: UNK
     Dates: start: 19920101
  6. NORETHINDRONE [Concomitant]
     Indication: HEADACHE
     Dosage: UNK
     Dates: start: 20050101
  7. MEPERIDINE HCL [Concomitant]
     Indication: PAIN
     Dosage: UNK
     Dates: start: 19920101
  8. COMPAZINE [Concomitant]
     Indication: NAUSEA
     Dosage: UNK
     Dates: start: 19920101

REACTIONS (5)
  - MENTAL DISORDER [None]
  - SUICIDE ATTEMPT [None]
  - INTENTIONAL OVERDOSE [None]
  - DEPRESSION [None]
  - ANXIETY [None]
